FAERS Safety Report 7457272-9 (Version None)
Quarter: 2011Q2

REPORT INFORMATION
  Report Type: 
  Country: None (occurrence: None)
  Receive Date: 20110504
  Receipt Date: 20110427
  Transmission Date: 20111010
  Serious: No
  Sender: FDA-Public Use
  Company Number: US-ASTELLAS-2011US001450

PATIENT

DRUGS (1)
  1. PROTOPIC [Suspect]
     Indication: PRODUCT USED FOR UNKNOWN INDICATION
     Dosage: 0.03 %, UNKNOWN/D
     Route: 061

REACTIONS (1)
  - NO ADVERSE EVENT [None]
